FAERS Safety Report 20205396 (Version 1)
Quarter: 2021Q4

REPORT INFORMATION
  Report Type: Spontaneous
  Country: CA (occurrence: CA)
  Receive Date: 20211220
  Receipt Date: 20211220
  Transmission Date: 20220303
  Serious: Yes (Hospitalization, Other)
  Sender: FDA-Public Use
  Company Number: CA-SUN PHARMACEUTICAL INDUSTRIES LTD-2021R1-320695

PATIENT
  Age: 58 Year
  Sex: Male

DRUGS (13)
  1. LANSOPRAZOLE [Suspect]
     Active Substance: LANSOPRAZOLE
     Indication: Product used for unknown indication
     Dosage: UNK
     Route: 065
  2. METOPROLOL [Suspect]
     Active Substance: METOPROLOL
     Indication: Blood pressure abnormal
     Dosage: UNK
     Route: 065
  3. SANDOSTATIN [Suspect]
     Active Substance: OCTREOTIDE ACETATE
     Indication: Small intestine carcinoma
     Dosage: UNK
     Route: 065
  4. SANDOSTATIN [Suspect]
     Active Substance: OCTREOTIDE ACETATE
     Dosage: 30 MILLIGRAM, 1 EVERY 4 WEEKS
     Route: 030
  5. SANDOSTATIN [Suspect]
     Active Substance: OCTREOTIDE ACETATE
     Dosage: 30 MILLIGRAM, 1 EVERY 3 WEEKS
     Route: 030
  6. ASPIRIN [Concomitant]
     Active Substance: ASPIRIN
     Indication: Product used for unknown indication
     Dosage: UNK
     Route: 065
  7. ATACAND [Concomitant]
     Active Substance: CANDESARTAN CILEXETIL
     Indication: Product used for unknown indication
     Dosage: UNK
     Route: 065
  8. COTAZYM ECS [Concomitant]
     Indication: Product used for unknown indication
     Dosage: UNK
     Route: 065
  9. IRON [Concomitant]
     Active Substance: IRON
     Indication: Product used for unknown indication
     Dosage: UNK
     Route: 065
  10. LASIX [Concomitant]
     Active Substance: FUROSEMIDE
     Indication: Product used for unknown indication
     Dosage: UNK
     Route: 065
  11. RAMIPRIL [Concomitant]
     Active Substance: RAMIPRIL
     Indication: Product used for unknown indication
     Dosage: UNK
     Route: 065
  12. SYNTHROID [Concomitant]
     Active Substance: LEVOTHYROXINE SODIUM
     Indication: Product used for unknown indication
     Dosage: 0.25 MILLIGRAM
     Route: 065
  13. WARFARIN [Concomitant]
     Active Substance: WARFARIN
     Indication: Product used for unknown indication
     Dosage: UNK
     Route: 065

REACTIONS (11)
  - Blood pressure increased [Unknown]
  - Blood pressure systolic increased [Unknown]
  - Hepatic cancer [Unknown]
  - Body temperature decreased [Unknown]
  - Fatigue [Unknown]
  - Heart rate increased [Unknown]
  - Inappropriate schedule of product administration [Unknown]
  - Memory impairment [Unknown]
  - Needle issue [Unknown]
  - Second primary malignancy [Unknown]
  - Tumour marker increased [Unknown]
